FAERS Safety Report 13368392 (Version 1)
Quarter: 2017Q1

REPORT INFORMATION
  Report Type: Not Available
  Country: ES (occurrence: ES)
  Receive Date: 20170324
  Receipt Date: 20170324
  Transmission Date: 20170429
  Serious: Yes (Other)
  Sender: FDA-Public Use
  Company Number: ES--2017-ES-000004

PATIENT
  Age: 52 Year
  Sex: Male

DRUGS (2)
  1. CYCLOSPORINE. [Suspect]
     Active Substance: CYCLOSPORINE
     Indication: APLASTIC ANAEMIA
     Route: 048
  2. LOSARTAN POTASSIUM BRAND UNSPECIFIED (VIVIMED) [Suspect]
     Active Substance: LOSARTAN POTASSIUM

REACTIONS (3)
  - Angle closure glaucoma [Recovered/Resolved]
  - Blindness [Recovered/Resolved]
  - Photopsia [None]
